FAERS Safety Report 24702940 (Version 1)
Quarter: 2024Q4

REPORT INFORMATION
  Report Type: Spontaneous
  Country: US (occurrence: US)
  Receive Date: 20241205
  Receipt Date: 20241205
  Transmission Date: 20250115
  Serious: No
  Sender: PERRIGO
  Company Number: US-PERRIGO-24US009073

PATIENT
  Sex: Female

DRUGS (1)
  1. OMEPRAZOLE MAGNESIUM [Suspect]
     Active Substance: OMEPRAZOLE MAGNESIUM
     Indication: Product used for unknown indication
     Dosage: 41.2 MG, BID
     Route: 048

REACTIONS (7)
  - Nausea [Unknown]
  - Feeling jittery [Unknown]
  - Nervousness [Unknown]
  - Oral pain [Unknown]
  - Dry mouth [Unknown]
  - Overdose [Unknown]
  - Inappropriate schedule of product administration [Unknown]
